FAERS Safety Report 10033996 (Version 2)
Quarter: 2014Q1

REPORT INFORMATION
  Report Type: Spontaneous
  Country: GB (occurrence: None)
  Receive Date: 20140320
  Receipt Date: 20140327
  Transmission Date: 20141002
  Serious: Yes (Disabling)
  Sender: FDA-Public Use
  Company Number: AUR-APL-2014-03001

PATIENT
  Age: 50 Year
  Sex: 0
  Weight: 82.55 kg

DRUGS (3)
  1. RAMIPRIL (RAMIPRIL) [Suspect]
     Indication: PRODUCT USED FOR UNKNOWN INDICATION
     Route: 048
     Dates: start: 20131212
  2. MIRTAZAPINE (MIRTAZAPINE) [Concomitant]
  3. THIAMINE (THIAMIINE) [Concomitant]

REACTIONS (4)
  - Oral pain [None]
  - Headache [None]
  - Sinusitis [None]
  - Haemorrhage [None]
